FAERS Safety Report 9995068 (Version 1)
Quarter: 2014Q1

REPORT INFORMATION
  Report Type: Spontaneous
  Country: US (occurrence: None)
  Receive Date: 20140307
  Receipt Date: 20140307
  Transmission Date: 20141002
  Serious: Yes (Other)
  Sender: FDA-Public Use
  Company Number: None

PATIENT
  Age: 55 Year
  Sex: Female
  Weight: 90.72 kg

DRUGS (8)
  1. BELVIQ [Suspect]
     Indication: TYPE 2 DIABETES MELLITUS
     Dosage: 2 PILLS 2 TIMES A DAY
     Route: 048
     Dates: start: 20140214, end: 20140216
  2. METFORMIN [Concomitant]
  3. ATORVASTATIN [Concomitant]
  4. PROLITAZONE [Concomitant]
  5. NORTRIPTYLINE [Concomitant]
  6. IMITREX [Concomitant]
  7. BYDUREON [Concomitant]
  8. LYRICA [Concomitant]

REACTIONS (4)
  - Pruritus [None]
  - Urticaria [None]
  - Urticaria [None]
  - Rash [None]
